FAERS Safety Report 6187608-0 (Version None)
Quarter: 2009Q2

REPORT INFORMATION
  Report Type: 
  Country: None (occurrence: None)
  Receive Date: 20090511
  Receipt Date: 20090430
  Transmission Date: 20091009
  Serious: Yes (Other)
  Sender: FDA-Public Use
  Company Number: 2009US001051

PATIENT
  Age: 68 Year
  Sex: Male
  Weight: 82.1 kg

DRUGS (9)
  1. LEXISCAN [Suspect]
     Indication: SCAN MYOCARDIAL PERFUSION
     Dosage: 0.4 MG, TOTAL DOSE, IV BOLUS
     Route: 040
     Dates: start: 20090421, end: 20090421
  2. AMBIEN [Concomitant]
  3. ALLOPURINOL [Concomitant]
  4. VICODIN [Concomitant]
  5. SENOKOT [Concomitant]
  6. PREDNISONE TAB [Concomitant]
  7. PEPCID [Concomitant]
  8. FISH OIL (FISH OIL) [Concomitant]
  9. CHEMOTHERAPEUTICS NOS [Concomitant]

REACTIONS (9)
  - ABDOMINAL DISTENSION [None]
  - BLOOD PRESSURE DECREASED [None]
  - BRADYCARDIA [None]
  - CONVULSION [None]
  - DIZZINESS [None]
  - ELECTROCARDIOGRAM ABNORMAL [None]
  - HYPERHIDROSIS [None]
  - LOSS OF CONSCIOUSNESS [None]
  - NAUSEA [None]
